FAERS Safety Report 6936082-2 (Version None)
Quarter: 2010Q3

REPORT INFORMATION
  Report Type: 
  Country: None (occurrence: None)
  Receive Date: 20100819
  Receipt Date: 20100819
  Transmission Date: 20110219
  Serious: Yes (Hospitalization, Other)
  Sender: FDA-Public Use
  Company Number: None

PATIENT
  Sex: Male

DRUGS (1)
  1. LEVAQUIN [Suspect]

REACTIONS (6)
  - CATARACT [None]
  - COAGULOPATHY [None]
  - GAIT DISTURBANCE [None]
  - HYPOKINESIA [None]
  - LUPUS-LIKE SYNDROME [None]
  - STEVENS-JOHNSON SYNDROME [None]
